FAERS Safety Report 19958517 (Version 1)
Quarter: 2021Q4

REPORT INFORMATION
  Report Type: Spontaneous
  Country: CN (occurrence: CN)
  Receive Date: 20211015
  Receipt Date: 20211015
  Transmission Date: 20220303
  Serious: Yes (Other)
  Sender: FDA-Public Use
  Company Number: CN-PFIZER INC-202101302053

PATIENT
  Age: 59 Year
  Sex: Male
  Weight: 65 kg

DRUGS (2)
  1. SOLU-MEDROL [Suspect]
     Active Substance: METHYLPREDNISOLONE SODIUM SUCCINATE
     Indication: Carbon monoxide poisoning
     Dosage: 40.000 MG, 1X/DAY
     Route: 041
     Dates: start: 20210903, end: 20210915
  2. SODIUM CHLORIDE [Concomitant]
     Active Substance: SODIUM CHLORIDE
     Indication: Vehicle solution use
     Dosage: 100 ML, 1X/DAY
     Route: 041
     Dates: start: 20210903, end: 20210915

REACTIONS (7)
  - Oropharyngeal discomfort [Recovering/Resolving]
  - Oropharyngitis fungal [Unknown]
  - Pharyngeal erythema [Recovering/Resolving]
  - Pharyngeal swelling [Recovering/Resolving]
  - Pharyngeal disorder [Recovered/Resolved]
  - Dysbiosis [Unknown]
  - Off label use [Unknown]

NARRATIVE: CASE EVENT DATE: 20210916
